FAERS Safety Report 6858637-6 (Version None)
Quarter: 2010Q3

REPORT INFORMATION
  Report Type: 
  Country: None (occurrence: None)
  Receive Date: 20100719
  Receipt Date: 20080211
  Transmission Date: 20110219
  Serious: No
  Sender: FDA-Public Use
  Company Number: US-PFIZER INC-2008014999

PATIENT
  Age: 65 Year
  Sex: Female
  Weight: 63.5 kg

DRUGS (5)
  1. CHANTIX [Suspect]
     Indication: SMOKING CESSATION THERAPY
  2. ATIVAN [Concomitant]
     Indication: INSOMNIA
  3. HERBAL PREPARATION INGREDIENTS UNKNOWN [Concomitant]
  4. VITAMINS [Concomitant]
  5. HERBAL PREPARATION [Concomitant]

REACTIONS (7)
  - DISTURBANCE IN ATTENTION [None]
  - DYSGEUSIA [None]
  - FATIGUE [None]
  - INCORRECT DOSE ADMINISTERED [None]
  - INSOMNIA [None]
  - NAUSEA [None]
  - POOR QUALITY SLEEP [None]
